FAERS Safety Report 9342054 (Version 4)
Quarter: 2013Q3

REPORT INFORMATION
  Report Type: Spontaneous
  Country: GB (occurrence: None)
  Receive Date: 20130606
  Receipt Date: 20130729
  Transmission Date: 20140515
  Serious: Yes (Hospitalization)
  Sender: FDA-Public Use
  Company Number: 1733027

PATIENT
  Age: 3 Year
  Sex: Male
  Weight: 15.7 kg

DRUGS (21)
  1. VINCRISTINE SULFATE [Suspect]
     Indication: NEOPLASM MALIGNANT
     Dosage: 1 DAY
     Route: 040
     Dates: start: 20130504
  2. DOXORUBICIN HYDROCHLORIDE [Suspect]
     Indication: NEOPLASM MALIGNANT
     Dosage: 1 DAY
     Route: 040
     Dates: start: 20130504
  3. DACTINOMYCIN [Suspect]
     Indication: NEOPLASM MALIGNANT
     Dosage: 1 DAY
     Route: 040
     Dates: start: 20130504
  4. IFOSFAMIDE [Suspect]
     Indication: NEOPLASM MALIGNANT
     Dosage: 1 DAY
     Route: 041
     Dates: start: 20130504
  5. BEVACIZUMAB [Concomitant]
     Indication: NEOPLASM MALIGNANT
     Route: 042
     Dates: start: 20130524
  6. DEXAMETHASONE [Concomitant]
  7. ONDANSETRON [Concomitant]
  8. DEXAMETHASONE [Concomitant]
  9. LEVOMEPROMAZINE [Concomitant]
  10. PARACETAMOL [Concomitant]
  11. PIPERACILLIN SODIUM W/ TAZOBACTAM SODIUM [Concomitant]
  12. POLYTHYLENE GLYCOL [Concomitant]
  13. METOCLOPRAMIDE [Concomitant]
  14. PANTOPRAZOLE [Concomitant]
  15. MESNA [Concomitant]
  16. DOMPERIDONE [Concomitant]
  17. RANITIDIN [Concomitant]
  18. OMEPRAZOLE [Concomitant]
  19. SENNA [Concomitant]
  20. LEVOPROMAZIN [Concomitant]
  21. SCOPOLAMINE BUTYLBROMIDE [Concomitant]

REACTIONS (11)
  - Febrile neutropenia [None]
  - Pleural effusion [None]
  - Hypophagia [None]
  - Haemoglobin decreased [None]
  - Fluid overload [None]
  - Respiratory distress [None]
  - Weight decreased [None]
  - Vomiting [None]
  - Malnutrition [None]
  - Diarrhoea [None]
  - White blood cell count decreased [None]
